FAERS Safety Report 17275374 (Version 7)
Quarter: 2021Q4

REPORT INFORMATION
  Report Type: Report from Study
  Country: JP (occurrence: JP)
  Receive Date: 20200116
  Receipt Date: 20211218
  Transmission Date: 20220304
  Serious: Yes (Hospitalization)
  Sender: FDA-Public Use
  Company Number: JP-CHUGAI-C2019024171ROCHE

PATIENT
  Age: 71 Year
  Sex: Female
  Weight: 41.3 kg

DRUGS (14)
  1. BEVACIZUMAB [Suspect]
     Active Substance: BEVACIZUMAB
     Indication: Lung adenocarcinoma
     Route: 041
     Dates: start: 20191018, end: 20210419
  2. ATEZOLIZUMAB [Suspect]
     Active Substance: ATEZOLIZUMAB
     Indication: Lung adenocarcinoma
     Route: 041
     Dates: start: 20191018, end: 20210419
  3. ALIMTA [Suspect]
     Active Substance: PEMETREXED DISODIUM
     Indication: Lung adenocarcinoma
     Route: 041
     Dates: start: 20191018
  4. HYDROXOCOBALAMIN [Concomitant]
     Active Substance: HYDROXOCOBALAMIN
     Indication: Prophylaxis
     Route: 030
  5. UMECLIDINIUM BROMIDE\VILANTEROL TRIFENATATE [Concomitant]
     Active Substance: UMECLIDINIUM BROMIDE\VILANTEROL TRIFENATATE
     Indication: Chronic obstructive pulmonary disease
     Dosage: ONE INHALATION ONCE
     Route: 055
     Dates: start: 20190823
  6. ROSUVASTATIN [Concomitant]
     Active Substance: ROSUVASTATIN
     Indication: Hyperlipidaemia
     Dosage: DURING A DAY ONCE AFTER THE SUPPER
     Route: 048
     Dates: start: 20190713
  7. BROTIZOLAM [Concomitant]
     Active Substance: BROTIZOLAM
     Indication: Insomnia
     Dosage: AT THE SLEEP LOSS
     Route: 048
  8. LOXOPROFEN SODIUM [Concomitant]
     Active Substance: LOXOPROFEN SODIUM
     Indication: Myalgia
     Dosage: IT STICKS IT ON THE DISEASED PART.
     Route: 061
     Dates: start: 20191019
  9. CALONAL [Concomitant]
     Active Substance: ACETAMINOPHEN
     Indication: Oral pain
     Dosage: AT THE PAIN
     Route: 048
  10. ANETOCAINE [Concomitant]
     Indication: Oral pain
     Dosage: UNCERTAIN DOSAGE AND GARGLE
  11. XYLOCAINE [Concomitant]
     Active Substance: LIDOCAINE HYDROCHLORIDE
     Indication: Oral pain
     Dosage: UNCERTAIN DOSAGE AND GARGLE
  12. SODIUM BICARBONATE;SODIUM GUALENATE HYDRATE [Concomitant]
     Indication: Oral pain
     Dosage: GARGLE
  13. BROTIZOLAM [Concomitant]
     Active Substance: BROTIZOLAM
     Indication: Insomnia
     Dosage: AT THE SLEEP LOSS
     Route: 048
  14. CARBOPLATIN [Concomitant]
     Active Substance: CARBOPLATIN

REACTIONS (2)
  - Pyrexia [Recovered/Resolved]
  - Blood creatinine increased [Recovering/Resolving]

NARRATIVE: CASE EVENT DATE: 20191026
